FAERS Safety Report 20712095 (Version 1)
Quarter: 2022Q2

REPORT INFORMATION
  Report Type: Spontaneous
  Country: FR (occurrence: FR)
  Receive Date: 20220414
  Receipt Date: 20220414
  Transmission Date: 20220721
  Serious: Yes (Life-Threatening)
  Sender: FDA-Public Use
  Company Number: None

PATIENT
  Age: 56 Year
  Sex: Male

DRUGS (4)
  1. XARELTO [Suspect]
     Active Substance: RIVAROXABAN
     Indication: Intentional overdose
     Dosage: UNK
     Route: 048
     Dates: start: 20220320
  2. MELATONIN [Suspect]
     Active Substance: MELATONIN
     Indication: Intentional overdose
     Dosage: 15 DF
     Route: 048
     Dates: start: 20220320
  3. TRIMEPRAZINE [Suspect]
     Active Substance: TRIMEPRAZINE
     Indication: Intentional overdose
     Dosage: UNK
     Route: 048
     Dates: start: 20220320
  4. XANAX [Suspect]
     Active Substance: ALPRAZOLAM
     Indication: Intentional overdose
     Dosage: 15 DF
     Route: 048
     Dates: start: 20220320

REACTIONS (2)
  - Coma [Recovering/Resolving]
  - Intentional overdose [Recovering/Resolving]

NARRATIVE: CASE EVENT DATE: 20220320
